FAERS Safety Report 9782973 (Version 2)
Quarter: 2013Q4

REPORT INFORMATION
  Report Type: Spontaneous
  Country: US (occurrence: US)
  Receive Date: 20131226
  Receipt Date: 20131231
  Transmission Date: 20140711
  Serious: Yes (Other)
  Sender: FDA-Public Use
  Company Number: US-PFIZER INC-2013367300

PATIENT
  Sex: 0

DRUGS (3)
  1. LYRICA [Suspect]
     Dosage: 150 MG, 2X/DAY
  2. CYMBALTA [Concomitant]
     Dosage: UNK
  3. WELLBUTRIN [Concomitant]

REACTIONS (9)
  - Convulsion [Unknown]
  - Weight increased [Unknown]
  - Swelling [Unknown]
  - Malaise [Unknown]
  - Depression [Unknown]
  - Pain [Unknown]
  - Muscular weakness [Unknown]
  - Laziness [Unknown]
  - Nausea [Unknown]
